FAERS Safety Report 7074956-5 (Version None)
Quarter: 2010Q4

REPORT INFORMATION
  Report Type: 
  Country: None (occurrence: None)
  Receive Date: 20101029
  Receipt Date: 20101029
  Transmission Date: 20110411
  Serious: Yes (Hospitalization)
  Sender: FDA-Public Use
  Company Number: JP-AMGEN-JPNCT2010001683

PATIENT

DRUGS (1)
  1. PANITUMUMAB [Suspect]
     Indication: COLORECTAL CANCER
     Dosage: UNK
     Dates: start: 20100720, end: 20100912

REACTIONS (12)
  - ALANINE AMINOTRANSFERASE INCREASED [None]
  - ASPARTATE AMINOTRANSFERASE INCREASED [None]
  - BLOOD ALKALINE PHOSPHATASE INCREASED [None]
  - BLOOD BILIRUBIN INCREASED [None]
  - DERMATITIS ACNEIFORM [None]
  - DRY SKIN [None]
  - ERYTHEMA [None]
  - HYPOKALAEMIA [None]
  - HYPOMAGNESAEMIA [None]
  - PARONYCHIA [None]
  - PRURITUS [None]
  - SKIN EXFOLIATION [None]
